FAERS Safety Report 25790611 (Version 2)
Quarter: 2025Q3

REPORT INFORMATION
  Report Type: Spontaneous
  Country: US (occurrence: US)
  Receive Date: 20250911
  Receipt Date: 20250918
  Transmission Date: 20251020
  Serious: Yes (Other)
  Sender: MYLAN
  Company Number: US-MYLANLABS-2025M1076001

PATIENT
  Age: 3 Year
  Sex: Male

DRUGS (28)
  1. LEVETIRACETAM [Suspect]
     Active Substance: LEVETIRACETAM
     Indication: Petit mal epilepsy
  2. LEVETIRACETAM [Suspect]
     Active Substance: LEVETIRACETAM
     Route: 065
  3. LEVETIRACETAM [Suspect]
     Active Substance: LEVETIRACETAM
     Route: 065
  4. LEVETIRACETAM [Suspect]
     Active Substance: LEVETIRACETAM
  5. LEVOTHYROXINE [Suspect]
     Active Substance: LEVOTHYROXINE
     Indication: Hypothyroidism
  6. LEVOTHYROXINE [Suspect]
     Active Substance: LEVOTHYROXINE
     Route: 065
  7. LEVOTHYROXINE [Suspect]
     Active Substance: LEVOTHYROXINE
     Route: 065
  8. LEVOTHYROXINE [Suspect]
     Active Substance: LEVOTHYROXINE
  9. VALPROATE [Suspect]
     Active Substance: VALPROIC ACID
     Indication: Petit mal epilepsy
     Dosage: 28 MILLIGRAM/KILOGRAM, QD
  10. VALPROATE [Suspect]
     Active Substance: VALPROIC ACID
     Dosage: 28 MILLIGRAM/KILOGRAM, QD
  11. VALPROATE [Suspect]
     Active Substance: VALPROIC ACID
     Dosage: 28 MILLIGRAM/KILOGRAM, QD
     Route: 065
  12. VALPROATE [Suspect]
     Active Substance: VALPROIC ACID
     Dosage: 28 MILLIGRAM/KILOGRAM, QD
     Route: 065
  13. VALPROATE [Suspect]
     Active Substance: VALPROIC ACID
     Dosage: 32 MILLIGRAM/KILOGRAM, QD
  14. VALPROATE [Suspect]
     Active Substance: VALPROIC ACID
     Dosage: 32 MILLIGRAM/KILOGRAM, QD
  15. VALPROATE [Suspect]
     Active Substance: VALPROIC ACID
     Dosage: 32 MILLIGRAM/KILOGRAM, QD
     Route: 065
  16. VALPROATE [Suspect]
     Active Substance: VALPROIC ACID
     Dosage: 32 MILLIGRAM/KILOGRAM, QD
     Route: 065
  17. ETHOSUXIMIDE [Concomitant]
     Active Substance: ETHOSUXIMIDE
     Indication: Petit mal epilepsy
     Dosage: 44 MILLIGRAM/KILOGRAM, QD
  18. ETHOSUXIMIDE [Concomitant]
     Active Substance: ETHOSUXIMIDE
     Dosage: 44 MILLIGRAM/KILOGRAM, QD
     Route: 065
  19. ETHOSUXIMIDE [Concomitant]
     Active Substance: ETHOSUXIMIDE
     Dosage: 44 MILLIGRAM/KILOGRAM, QD
     Route: 065
  20. ETHOSUXIMIDE [Concomitant]
     Active Substance: ETHOSUXIMIDE
     Dosage: 44 MILLIGRAM/KILOGRAM, QD
  21. LAMOTRIGINE [Concomitant]
     Active Substance: LAMOTRIGINE
     Indication: Petit mal epilepsy
     Route: 065
  22. LAMOTRIGINE [Concomitant]
     Active Substance: LAMOTRIGINE
  23. LAMOTRIGINE [Concomitant]
     Active Substance: LAMOTRIGINE
  24. LAMOTRIGINE [Concomitant]
     Active Substance: LAMOTRIGINE
     Route: 065
  25. LAMOTRIGINE [Concomitant]
     Active Substance: LAMOTRIGINE
     Route: 065
  26. LAMOTRIGINE [Concomitant]
     Active Substance: LAMOTRIGINE
  27. LAMOTRIGINE [Concomitant]
     Active Substance: LAMOTRIGINE
  28. LAMOTRIGINE [Concomitant]
     Active Substance: LAMOTRIGINE
     Route: 065

REACTIONS (4)
  - Behaviour disorder [Unknown]
  - Hypothyroidism [Recovered/Resolved]
  - Increased appetite [Recovered/Resolved]
  - Psychomotor hyperactivity [Recovered/Resolved]
